FAERS Safety Report 13946531 (Version 1)
Quarter: 2017Q3

REPORT INFORMATION
  Report Type: Report from Study
  Country: JP (occurrence: JP)
  Receive Date: 20170907
  Receipt Date: 20170907
  Transmission Date: 20171128
  Serious: Yes (Other)
  Sender: FDA-Public Use
  Company Number: PHJP2017JP027123

PATIENT
  Age: 69 Year
  Sex: Female

DRUGS (5)
  1. ZYKADIA [Suspect]
     Active Substance: CERITINIB
     Dosage: 300 MG, QD
     Route: 048
     Dates: start: 20170607
  2. ZYKADIA [Suspect]
     Active Substance: CERITINIB
     Dosage: 600 MG, QD
     Route: 048
     Dates: start: 20170510, end: 20170527
  3. ZYKADIA [Suspect]
     Active Substance: CERITINIB
     Dosage: 450 MG, QD
     Route: 048
     Dates: start: 20170528, end: 20170606
  4. DEPAKENE [Concomitant]
     Active Substance: VALPROIC ACID
     Indication: NON-SMALL CELL LUNG CANCER STAGE IV
     Dosage: 400 MG, QD
     Route: 048
  5. ZYKADIA [Suspect]
     Active Substance: CERITINIB
     Indication: NON-SMALL CELL LUNG CANCER STAGE IV
     Dosage: 750 MG, QD
     Route: 048
     Dates: start: 20170414, end: 20170509

REACTIONS (6)
  - Liver disorder [Unknown]
  - Decreased appetite [Recovered/Resolved]
  - Diarrhoea [Recovering/Resolving]
  - Aspartate aminotransferase increased [Recovered/Resolved]
  - Nausea [Unknown]
  - Alanine aminotransferase increased [Recovered/Resolved]

NARRATIVE: CASE EVENT DATE: 20170415
